FAERS Safety Report 7101855-2 (Version None)
Quarter: 2010Q4

REPORT INFORMATION
  Report Type: 
  Country: None (occurrence: None)
  Receive Date: 20101115
  Receipt Date: 20101101
  Transmission Date: 20110411
  Serious: Yes (Hospitalization)
  Sender: FDA-Public Use
  Company Number: US-ELI_LILLY_AND_COMPANY-US201008005582

PATIENT
  Sex: Female
  Weight: 93.4 kg

DRUGS (13)
  1. PEMETREXED [Suspect]
     Indication: NON-SMALL CELL LUNG CANCER
     Dosage: 500 MG/M2, (985MG) DAY 1 EVERY 21 DAYS
     Route: 042
     Dates: start: 20100716
  2. CARBOPLATIN [Suspect]
     Indication: NON-SMALL CELL LUNG CANCER
     Dosage: 6 AUC (786MG) DAY 1 EVERY 21 DAYS
     Route: 042
     Dates: start: 20100716
  3. BEVACIZUMAB [Suspect]
     Indication: NON-SMALL CELL LUNG CANCER
     Dosage: 15 MG/KG,(1463MG) DAY 1 EVERY 21 DAYS
     Route: 042
     Dates: start: 20100716
  4. METFORMIN HCL [Concomitant]
     Indication: DIABETES MELLITUS
  5. DIOVAN [Concomitant]
     Indication: HYPERTENSION
  6. ALENDRONATE SODIUM [Concomitant]
     Indication: OSTEOPOROSIS
  7. HYDROCHLOROTHIAZIDE [Concomitant]
     Indication: HYPERTENSION
  8. BUPROPION [Concomitant]
     Indication: DEPRESSION
  9. SIMVASTATIN [Concomitant]
     Indication: HYPERLIPIDAEMIA
  10. ZOFRAN [Concomitant]
     Indication: NAUSEA
  11. DECADRON [Concomitant]
     Indication: PROPHYLAXIS
     Dosage: UNK, UNK
     Dates: start: 20100709
  12. FOLIC ACID [Concomitant]
     Indication: PREMEDICATION
     Dates: start: 20100709
  13. VITAMIN B-12 [Concomitant]
     Indication: PREMEDICATION
     Dates: start: 20100709

REACTIONS (12)
  - BLOOD UREA INCREASED [None]
  - DECREASED APPETITE [None]
  - DEHYDRATION [None]
  - DIZZINESS [None]
  - HAEMATOCRIT DECREASED [None]
  - HAEMOGLOBIN DECREASED [None]
  - HAEMORRHOIDAL HAEMORRHAGE [None]
  - HYPOTENSION [None]
  - NAUSEA [None]
  - RENAL FAILURE [None]
  - VOMITING [None]
  - WHITE BLOOD CELL COUNT DECREASED [None]
